FAERS Safety Report 18107888 (Version 1)
Quarter: 2020Q3

REPORT INFORMATION
  Report Type: Spontaneous
  Country: HN (occurrence: HN)
  Receive Date: 20200803
  Receipt Date: 20200803
  Transmission Date: 20201103
  Serious: Yes (Other)
  Sender: FDA-Public Use
  Company Number: HN-US-PROVELL PHARMACEUTICALS LLC-9178264

PATIENT
  Age: 29 Year

DRUGS (1)
  1. EUTHYROX [Suspect]
     Active Substance: LEVOTHYROXINE SODIUM
     Indication: PRODUCT USED FOR UNKNOWN INDICATION
     Dosage: 150 (UNSPECIFIED UNITS)

REACTIONS (2)
  - Exophthalmos [Unknown]
  - Insomnia [Unknown]
